FAERS Safety Report 6193508-2 (Version None)
Quarter: 2009Q2

REPORT INFORMATION
  Report Type: 
  Country: None (occurrence: None)
  Receive Date: 20090518
  Receipt Date: 20090511
  Transmission Date: 20091009
  Serious: Yes (Hospitalization)
  Sender: FDA-Public Use
  Company Number: US-BIOGENIDEC-2009BI014126

PATIENT
  Age: 55 Year
  Sex: Male
  Weight: 126 kg

DRUGS (2)
  1. TYSABRI [Suspect]
     Indication: MULTIPLE SCLEROSIS
     Route: 042
     Dates: start: 20081006, end: 20081006
  2. TYSABRI [Suspect]
     Route: 042
     Dates: start: 20090408

REACTIONS (6)
  - BLOOD PRESSURE DECREASED [None]
  - COLD SWEAT [None]
  - DIZZINESS [None]
  - HEART RATE DECREASED [None]
  - PRESYNCOPE [None]
  - RASH [None]
